FAERS Safety Report 19246538 (Version 2)
Quarter: 2021Q4

REPORT INFORMATION
  Report Type: Report from Study
  Country: US (occurrence: US)
  Receive Date: 20210512
  Receipt Date: 20211105
  Transmission Date: 20220303
  Serious: Yes (Other)
  Sender: FDA-Public Use
  Company Number: US-JAZZ-2017-US-002765

PATIENT
  Sex: Female
  Weight: 54.422 kg

DRUGS (31)
  1. XYREM [Suspect]
     Active Substance: SODIUM OXYBATE
     Indication: Narcolepsy
     Dosage: 2.25 GRAM, BID
     Route: 048
     Dates: start: 201608, end: 201608
  2. XYREM [Suspect]
     Active Substance: SODIUM OXYBATE
     Indication: Cataplexy
     Dosage: DOSE ADJUSTMENT
     Route: 048
     Dates: start: 201608, end: 201609
  3. XYREM [Suspect]
     Active Substance: SODIUM OXYBATE
     Dosage: 3.75 GRAM, FIRST DOSE
     Route: 048
     Dates: start: 201609, end: 201702
  4. XYREM [Suspect]
     Active Substance: SODIUM OXYBATE
     Dosage: 3 GRAM, SECOND DOSE
     Route: 048
     Dates: start: 201609, end: 201702
  5. XYREM [Suspect]
     Active Substance: SODIUM OXYBATE
     Dosage: 1.75 GRAM, BID
     Route: 048
  6. ADRENOL [Concomitant]
  7. ASPIRIN [Concomitant]
     Active Substance: ASPIRIN
  8. BANDEROL NUTRAMEDIX [Concomitant]
  9. BROMELAINS [Concomitant]
     Active Substance: BROMELAINS
  10. CANDIBACTIN AR [Concomitant]
  11. CEFTRIAXONE [Concomitant]
     Active Substance: CEFTRIAXONE
  12. DETOX [ATTAPULGITE] [Concomitant]
  13. GLUTATHIONE [Concomitant]
     Active Substance: GLUTATHIONE
  14. IRON [Concomitant]
     Active Substance: IRON
  15. GLUTAMIC ACID [Concomitant]
     Active Substance: GLUTAMIC ACID
  16. MAGNESIUM GLYCINATE [Concomitant]
     Active Substance: MAGNESIUM GLYCINATE
  17. MEPRON [Concomitant]
     Active Substance: ATOVAQUONE
  18. DIETARY SUPPLEMENT\HERBALS\MILK THISTLE [Concomitant]
     Active Substance: DIETARY SUPPLEMENT\HERBALS\MILK THISTLE
  19. ACETYLCYSTEINE [Concomitant]
     Active Substance: ACETYLCYSTEINE
  20. NALTREXONE [Concomitant]
     Active Substance: NALTREXONE
  21. NYSTATIN [Concomitant]
     Active Substance: NYSTATIN
  22. SODIUM CHLORIDE [Concomitant]
     Active Substance: SODIUM CHLORIDE
  23. SILVER [Concomitant]
     Active Substance: SILVER
  24. STEVIA [STEVIA REBAUDIANA] [Concomitant]
  25. TEA TREE [Concomitant]
     Active Substance: GLYCERIN
  26. URSODIOL [Concomitant]
     Active Substance: URSODIOL
  27. VITAMIN B COMPLEX [Concomitant]
     Active Substance: CYANOCOBALAMIN\DEXPANTHENOL\NIACINAMIDE\PYRIDOXINE HYDROCHLORIDE\RIBOFLAVIN 5^-PHOSPHATE SODIUM\THIA
  28. VITAMIN B12 [Concomitant]
     Active Substance: CYANOCOBALAMIN
  29. VITAMIN D3 [Concomitant]
     Active Substance: CHOLECALCIFEROL
  30. ZITHROMAX [Concomitant]
     Active Substance: AZITHROMYCIN DIHYDRATE
  31. NUVIGIL [Concomitant]
     Active Substance: ARMODAFINIL

REACTIONS (6)
  - Neuropathy peripheral [Unknown]
  - Dysphagia [Recovering/Resolving]
  - Retching [Recovering/Resolving]
  - Nausea [Unknown]
  - Weight decreased [Recovered/Resolved]
  - Intentional product use issue [Unknown]
